FAERS Safety Report 20916871 (Version 2)
Quarter: 2022Q3

REPORT INFORMATION
  Report Type: Spontaneous
  Country: FI (occurrence: FI)
  Receive Date: 20220605
  Receipt Date: 20220711
  Transmission Date: 20221026
  Serious: Yes (Life-Threatening, Hospitalization, Other)
  Sender: FDA-Public Use
  Company Number: FI-MLMSERVICE-20220513-3555839-1

PATIENT
  Age: 9 Year
  Sex: Male

DRUGS (2)
  1. DOXORUBICIN [Suspect]
     Active Substance: DOXORUBICIN
     Indication: Osteosarcoma
     Dosage: 300 MG/M2, CUMULATIVE DOSE
     Route: 065
  2. DOXORUBICIN [Suspect]
     Active Substance: DOXORUBICIN
     Dosage: 450 MG/M2, TOTAL, CUMULATIVE DOXORUBICIN DOSE OF 450 MG/M2 AT COMPLETION OF TREATMENT
     Route: 065

REACTIONS (3)
  - Pericardial effusion [Recovered/Resolved]
  - Cardiac failure chronic [Recovered/Resolved]
  - Cardiomyopathy [Recovered/Resolved]
